FAERS Safety Report 24792029 (Version 1)
Quarter: 2024Q4

REPORT INFORMATION
  Report Type: Spontaneous
  Country: CN (occurrence: CN)
  Receive Date: 20241231
  Receipt Date: 20241231
  Transmission Date: 20250114
  Serious: Yes (Life-Threatening, Hospitalization, Other)
  Sender: Steriscience PTE
  Company Number: CN-STERISCIENCE B.V.-2024-ST-002196

PATIENT
  Age: 49 Year
  Sex: Female

DRUGS (7)
  1. MEROPENEM [Suspect]
     Active Substance: MEROPENEM
     Indication: Lactobacillus infection
     Dosage: UNK
     Route: 065
     Dates: start: 20230927, end: 20231004
  2. VANCOMYCIN [Suspect]
     Active Substance: VANCOMYCIN
     Indication: Lactobacillus infection
     Dosage: UNK
     Route: 065
     Dates: start: 20231012, end: 20231015
  3. TIGECYCLINE [Suspect]
     Active Substance: TIGECYCLINE
     Indication: Lactobacillus infection
     Dosage: UNK
     Route: 065
     Dates: start: 20231016, end: 20231019
  4. CLINDAMYCIN [Suspect]
     Active Substance: CLINDAMYCIN
     Indication: Lactobacillus infection
     Dosage: UNK
     Route: 065
     Dates: start: 20231016, end: 20231019
  5. IMIPENEM [Suspect]
     Active Substance: IMIPENEM
     Indication: Lactobacillus infection
     Dosage: UNK
     Route: 065
     Dates: start: 20231016, end: 20231019
  6. FLUCONAZOLE [Concomitant]
     Active Substance: FLUCONAZOLE
     Indication: Candida infection
     Dosage: UNK
     Route: 065
     Dates: start: 20230926, end: 20231012
  7. PIPERACILLIN SODIUM\TAZOBACTAM SODIUM [Concomitant]
     Active Substance: PIPERACILLIN SODIUM\TAZOBACTAM SODIUM
     Indication: Lactobacillus infection
     Dosage: UNK
     Route: 065
     Dates: start: 20230926

REACTIONS (2)
  - Condition aggravated [Unknown]
  - Drug ineffective [Unknown]
